APPROVED DRUG PRODUCT: IRINOTECAN HYDROCHLORIDE
Active Ingredient: IRINOTECAN HYDROCHLORIDE
Strength: 100MG/5ML (20MG/ML)
Dosage Form/Route: INJECTABLE;INJECTION
Application: A091032 | Product #002 | TE Code: AP
Applicant: HIKMA FARMACEUTICA (PORTUGAL) SA
Approved: Dec 20, 2010 | RLD: No | RS: No | Type: RX